FAERS Safety Report 4725830-8 (Version None)
Quarter: 2005Q3

REPORT INFORMATION
  Report Type: 
  Country: None (occurrence: None)
  Receive Date: 20050722
  Receipt Date: 20050722
  Transmission Date: 20060218
  Serious: Yes (Hospitalization)
  Sender: FDA-Public Use
  Company Number: None

PATIENT
  Age: 54 Year
  Sex: Male
  Weight: 61.8 kg

DRUGS (3)
  1. KETOPROFEN [Suspect]
     Indication: CANCER PAIN
     Dosage: 75 MG BID
  2. ZANTAC [Suspect]
     Indication: GASTROOESOPHAGEAL REFLUX DISEASE
     Dosage: 150 MG
  3. ZANTAC [Suspect]
     Indication: PEPTIC ULCER
     Dosage: 150 MG

REACTIONS (1)
  - HAEMATEMESIS [None]
